FAERS Safety Report 13951900 (Version 2)
Quarter: 2017Q3

REPORT INFORMATION
  Report Type: Report from Study
  Country: ES (occurrence: ES)
  Receive Date: 20170910
  Receipt Date: 20170927
  Transmission Date: 20171128
  Serious: Yes (Life-Threatening, Hospitalization, Other)
  Sender: FDA-Public Use
  Company Number: ES-AMGEN-ESPCT2017134070

PATIENT
  Age: 66 Year
  Sex: Male
  Weight: 107 kg

DRUGS (4)
  1. CISPLATIN. [Concomitant]
     Active Substance: CISPLATIN
     Indication: METASTASES TO BONE
     Dosage: UNK, Q3WK
     Route: 042
  2. PEMETREXED. [Suspect]
     Active Substance: PEMETREXED
     Indication: METASTASES TO BONE
     Dosage: 1119 MG, Q3WK
     Route: 042
     Dates: start: 20170206, end: 20170712
  3. DENOSUMAB [Suspect]
     Active Substance: DENOSUMAB
     Indication: METASTASES TO BONE
     Dosage: 120 MG, Q3WK
     Route: 058
     Dates: start: 20170206, end: 20170712
  4. CARBOPLATIN. [Concomitant]
     Active Substance: CARBOPLATIN
     Indication: METASTASES TO BONE
     Dosage: 715 MG, Q3WK
     Route: 042
     Dates: start: 20170206, end: 20170503

REACTIONS (1)
  - Septic shock [Recovered/Resolved]

NARRATIVE: CASE EVENT DATE: 20170711
